FAERS Safety Report 11828354 (Version 4)
Quarter: 2016Q4

REPORT INFORMATION
  Report Type: Spontaneous
  Country: US (occurrence: US)
  Receive Date: 20151211
  Receipt Date: 20161209
  Transmission Date: 20170206
  Serious: Yes (Hospitalization, Other)
  Sender: FDA-Public Use
  Company Number: US-BAUSCH-BL-2015-029612

PATIENT
  Age: 62 Year
  Sex: Female
  Weight: 63.56 kg

DRUGS (10)
  1. XIFAXAN [Suspect]
     Active Substance: RIFAXIMIN
     Indication: HEPATIC CIRRHOSIS
     Route: 048
     Dates: start: 201204
  2. OMEPRAZOLE. [Concomitant]
     Active Substance: OMEPRAZOLE
     Indication: GASTROOESOPHAGEAL REFLUX DISEASE
     Route: 048
  3. FOLIC ACID. [Concomitant]
     Active Substance: FOLIC ACID
     Indication: SUPPLEMENTATION THERAPY
     Route: 048
  4. NORTRIPTYLINE [Concomitant]
     Active Substance: NORTRIPTYLINE
     Indication: HEADACHE
     Route: 048
  5. XIFAXAN [Suspect]
     Active Substance: RIFAXIMIN
     Route: 048
     Dates: start: 201205
  6. NORTRIPTYLINE [Concomitant]
     Active Substance: NORTRIPTYLINE
     Indication: SLEEP DISORDER
  7. MULTIVITAMIN [Concomitant]
     Active Substance: VITAMINS
     Indication: SUPPLEMENTATION THERAPY
     Route: 048
  8. XIFAXAN [Suspect]
     Active Substance: RIFAXIMIN
     Route: 048
     Dates: start: 201407
  9. LACTULOSE. [Concomitant]
     Active Substance: LACTULOSE
     Indication: FREQUENT BOWEL MOVEMENTS
     Dosage: 3 TABLESPOON
     Route: 048
  10. GABAPENTIN. [Concomitant]
     Active Substance: GABAPENTIN
     Indication: PAIN
     Route: 048

REACTIONS (10)
  - Speech disorder [Unknown]
  - Cognitive disorder [Unknown]
  - Treatment noncompliance [Unknown]
  - Cerebrovascular accident [Recovering/Resolving]
  - Ammonia increased [Unknown]
  - Gastrointestinal pain [Unknown]
  - Hypokinesia [Unknown]
  - Balance disorder [Unknown]
  - Ill-defined disorder [Unknown]
  - Nodule [Not Recovered/Not Resolved]

NARRATIVE: CASE EVENT DATE: 201512
